FAERS Safety Report 4423455-5 (Version None)
Quarter: 2004Q3

REPORT INFORMATION
  Report Type: 
  Country: None (occurrence: None)
  Receive Date: 20040806
  Receipt Date: 20040725
  Transmission Date: 20050211
  Serious: Yes (Hospitalization)
  Sender: FDA-Public Use
  Company Number: T02-JPN-01350-01

PATIENT
  Age: 85 Year
  Sex: Male

DRUGS (14)
  1. MEMANTINE HCL [Suspect]
     Indication: DEMENTIA ALZHEIMER'S TYPE
     Dosage: 10 MG QD PO
     Route: 048
     Dates: start: 20020320, end: 20020613
  2. MEMANTINE HCL [Suspect]
     Indication: DEMENTIA ALZHEIMER'S TYPE
     Dosage: 10 MG QD PO
     Route: 048
     Dates: start: 20020616
  3. TOCOPHEROL NICOTINATE (TOCOPHEROL) [Concomitant]
  4. SODIUM FERROUS CITRATE (FERROUS CITRATE) [Concomitant]
  5. UBIDECARENONE [Concomitant]
  6. MAGNESIUM OXIDE [Concomitant]
  7. REBAMIPIDE [Concomitant]
  8. PIRENZEPINE HYDROCHLORIDE (PIRENZEPINE) [Concomitant]
  9. RANITIDINE HYDROCHLORIDE [Concomitant]
  10. MECOBALAMIN [Concomitant]
  11. LEVOFLOXACIN [Concomitant]
  12. LANOCONAZOLE [Concomitant]
  13. GENTAMICIN SULFATE [Concomitant]
  14. CHLORHEXIDINE GLUCONATE [Concomitant]

REACTIONS (5)
  - BLOOD URINE [None]
  - DIFFICULTY IN WALKING [None]
  - PROTEIN URINE [None]
  - PYREXIA [None]
  - URINARY TRACT INFECTION [None]
